FAERS Safety Report 12155090 (Version 1)
Quarter: 2016Q1

REPORT INFORMATION
  Report Type: Spontaneous
  Country: US (occurrence: None)
  Receive Date: 20160304
  Receipt Date: 20160304
  Transmission Date: 20160526
  Serious: Yes (Hospitalization)
  Sender: FDA-Public Use
  Company Number: None

PATIENT
  Age: 4 Year
  Sex: Female
  Weight: 12.3 kg

DRUGS (6)
  1. ONCASPAR [Suspect]
     Active Substance: PEGASPARGASE
     Dates: end: 20160127
  2. MERCAPTOPURINE. [Suspect]
     Active Substance: MERCAPTOPURINE
     Dates: end: 20160126
  3. CYTARABINE. [Suspect]
     Active Substance: CYTARABINE
     Dates: end: 20160122
  4. VINCRISTINE SULFATE. [Suspect]
     Active Substance: VINCRISTINE SULFATE
     Dates: end: 20160202
  5. CYCLOPHOSPHAMIDE. [Suspect]
     Active Substance: CYCLOPHOSPHAMIDE
     Dates: end: 20160112
  6. METHOTREXATE [Suspect]
     Active Substance: METHOTREXATE
     Dates: end: 20151222

REACTIONS (3)
  - Septic shock [None]
  - Febrile neutropenia [None]
  - Staphylococcus test positive [None]

NARRATIVE: CASE EVENT DATE: 20160206
